FAERS Safety Report 17764260 (Version 5)
Quarter: 2020Q3

REPORT INFORMATION
  Report Type: Report from Study
  Country: US (occurrence: US)
  Receive Date: 20200511
  Receipt Date: 20200825
  Transmission Date: 20201102
  Serious: Yes (Death, Hospitalization, Other)
  Sender: FDA-Public Use
  Company Number: US-ROCHE-2594767

PATIENT
  Age: 84 Year
  Sex: Male
  Weight: 78 kg

DRUGS (66)
  1. TYLENOL [Concomitant]
     Active Substance: ACETAMINOPHEN
     Dates: start: 20200420
  2. MORPHINE [Concomitant]
     Active Substance: MORPHINE
     Dates: start: 20200418
  3. MORPHINE [Concomitant]
     Active Substance: MORPHINE
     Route: 042
     Dates: start: 20200419, end: 20200419
  4. ROCEPHIN [Concomitant]
     Active Substance: CEFTRIAXONE SODIUM
     Dates: start: 20200418, end: 20200420
  5. LOVENOX [Concomitant]
     Active Substance: ENOXAPARIN SODIUM
     Dates: start: 20200418, end: 20200420
  6. LOVENOX [Concomitant]
     Active Substance: ENOXAPARIN SODIUM
     Dates: start: 20200418, end: 20200418
  7. ROBINUL [Concomitant]
     Active Substance: GLYCOPYRROLATE
     Dates: start: 20200418, end: 20200418
  8. FLUZONE HIGH?DOSE NOS [Concomitant]
     Active Substance: INFLUENZA A VIRUS A/CALIFORNIA/7/2009 X-179A (H1N1) ANTIGEN (FORMALDEHYDE INACTIVATED)\INFLUENZA A VIRUS A/VICTORIA/210/2009 X-187 (H3N2) ANTIGEN (FORMALDEHYDE INACTIVATED)\INFLUENZA B VIRUS B/BRISBANE/60/2008 ANTIGEN (FORMALDEHYDE INACTIVATED)
     Route: 030
     Dates: start: 20200418, end: 20200418
  9. SYNTHROID [Concomitant]
     Active Substance: LEVOTHYROXINE SODIUM
     Dates: start: 20200408, end: 20200408
  10. LISINOPRIL. [Concomitant]
     Active Substance: LISINOPRIL
     Dates: start: 20200418, end: 20200418
  11. ATIVAN [Concomitant]
     Active Substance: LORAZEPAM
     Dates: start: 20200420, end: 20200421
  12. MIRALAX [Concomitant]
     Active Substance: POLYETHYLENE GLYCOL 3350
     Dates: start: 20200418, end: 20200419
  13. TYLENOL [Concomitant]
     Active Substance: ACETAMINOPHEN
     Dates: start: 20200407, end: 20200407
  14. DECADRON [Concomitant]
     Active Substance: DEXAMETHASONE
     Dates: start: 20200218, end: 20200218
  15. ELOXATIN [Concomitant]
     Active Substance: OXALIPLATIN
     Dates: start: 20200203, end: 20200203
  16. ALOXI [Concomitant]
     Active Substance: PALONOSETRON HYDROCHLORIDE
     Dates: start: 20200218, end: 20200218
  17. ATEZOLIZUMAB. [Suspect]
     Active Substance: ATEZOLIZUMAB
     Indication: ADENOCARCINOMA OF COLON
     Dosage: THE DATE OF LAST DOSE OF ATEZOLIZUMAB PRIOR TO EVENT ONSET: 02/MAR/2020.
     Route: 041
     Dates: start: 20191216
  18. HALDOL [Concomitant]
     Active Substance: HALOPERIDOL
     Dates: start: 20200419, end: 20200420
  19. ATIVAN [Concomitant]
     Active Substance: LORAZEPAM
     Dates: start: 20200419, end: 20200420
  20. SOLU?MEDROL [Concomitant]
     Active Substance: METHYLPREDNISOLONE SODIUM SUCCINATE
     Dates: start: 20200418, end: 20200420
  21. DELTASONE [Concomitant]
     Active Substance: PREDNISONE
     Dates: start: 20200418, end: 20200418
  22. AQUAPHOR (UNITED STATES) [Concomitant]
     Dates: start: 20200420, end: 20200420
  23. LEUCOVORIN CALCIUM. [Suspect]
     Active Substance: LEUCOVORIN CALCIUM
     Indication: ADENOCARCINOMA OF COLON
     Route: 042
  24. MORPHINE [Concomitant]
     Active Substance: MORPHINE
     Dates: start: 20200420, end: 20200421
  25. HALDOL [Concomitant]
     Active Substance: HALOPERIDOL
     Dates: start: 20200420, end: 20200421
  26. ATIVAN [Concomitant]
     Active Substance: LORAZEPAM
     Dosage: 2 MG/ML
     Dates: start: 20200419, end: 20200420
  27. REGLAN [Concomitant]
     Active Substance: METOCLOPRAMIDE HYDROCHLORIDE
     Route: 042
     Dates: start: 20200418, end: 20200419
  28. FLOMAX [Concomitant]
     Active Substance: TAMSULOSIN HYDROCHLORIDE
     Dates: start: 20200418, end: 20200420
  29. MORPHINE [Concomitant]
     Active Substance: MORPHINE
     Dates: start: 20200420, end: 20200420
  30. MORPHINE [Concomitant]
     Active Substance: MORPHINE
     Route: 042
     Dates: start: 20200420, end: 20200420
  31. VIBRAMYCIN [Concomitant]
     Active Substance: DOXYCYCLINE
     Dates: start: 20200418, end: 20200420
  32. RELISTOR [Concomitant]
     Active Substance: METHYLNALTREXONE BROMIDE
     Route: 058
     Dates: start: 20200419, end: 20200420
  33. MIRALAX [Concomitant]
     Active Substance: POLYETHYLENE GLYCOL 3350
     Dates: start: 20200419, end: 20200419
  34. TYLENOL [Concomitant]
     Active Substance: ACETAMINOPHEN
     Dates: start: 20200417, end: 20200417
  35. TYLENOL [Concomitant]
     Active Substance: ACETAMINOPHEN
     Dates: start: 20200418, end: 20200419
  36. ONDANSETRON [Concomitant]
     Active Substance: ONDANSETRON
     Dates: start: 20200302, end: 20200302
  37. ELOXATIN [Concomitant]
     Active Substance: OXALIPLATIN
     Dates: start: 20200218, end: 20200218
  38. SYNTHROID [Concomitant]
     Active Substance: LEVOTHYROXINE SODIUM
     Dosage: 75 MCG
     Route: 048
     Dates: start: 20200418, end: 20200419
  39. SENOKOT [Concomitant]
     Active Substance: SENNOSIDES
     Dates: start: 20200418, end: 20200420
  40. SENOKOT [Concomitant]
     Active Substance: SENNOSIDES
     Dates: start: 20200418, end: 20200419
  41. MORPHINE [Concomitant]
     Active Substance: MORPHINE
     Route: 042
     Dates: start: 20200419, end: 20200420
  42. MORPHINE [Concomitant]
     Active Substance: MORPHINE
     Dates: start: 20200420, end: 20200421
  43. ROCEPHIN [Concomitant]
     Active Substance: CEFTRIAXONE SODIUM
     Dates: start: 20200406, end: 20200406
  44. VIBRAMYCIN [Concomitant]
     Active Substance: DOXYCYCLINE
     Dates: start: 20200406, end: 20200406
  45. MELATONIN [Concomitant]
     Active Substance: MELATONIN
     Route: 048
     Dates: start: 20200418, end: 20200420
  46. ROXICODONE [Concomitant]
     Active Substance: OXYCODONE HYDROCHLORIDE
     Route: 048
     Dates: start: 20200418, end: 20200420
  47. SODIUM CHLORIDE 0.9% [Concomitant]
     Active Substance: SODIUM CHLORIDE
     Dates: start: 20200418, end: 20200418
  48. DECADRON [Concomitant]
     Active Substance: DEXAMETHASONE
     Dates: start: 20200302, end: 20200302
  49. OXALIPLATIN. [Suspect]
     Active Substance: OXALIPLATIN
     Indication: ADENOCARCINOMA OF COLON
     Dosage: OVER 2 HOURS ON DAY 1
     Route: 042
     Dates: start: 20191216
  50. 5?FLUOROURACIL [Suspect]
     Active Substance: FLUOROURACIL
     Indication: ADENOCARCINOMA OF COLON
     Dosage: ON DAY 1 FOLLOWED BY 2400MG/M2 IV OVER 46 HOURS DAYS 1?3
     Route: 040
  51. TYLENOL [Concomitant]
     Active Substance: ACETAMINOPHEN
     Dates: start: 20200418, end: 20200419
  52. LORAZEPAM. [Concomitant]
     Active Substance: LORAZEPAM
     Dates: start: 20200418
  53. MORPHINE [Concomitant]
     Active Substance: MORPHINE
     Route: 042
     Dates: start: 20200420, end: 20200420
  54. MORPHINE [Concomitant]
     Active Substance: MORPHINE
     Route: 042
     Dates: start: 20200418, end: 20200420
  55. ROBINUL [Concomitant]
     Active Substance: GLYCOPYRROLATE
     Dates: start: 20200420, end: 20200421
  56. MORPHINE SULPHATE [Concomitant]
     Active Substance: MORPHINE SULFATE
     Dates: start: 20200420, end: 20200420
  57. CINVANTI [Concomitant]
     Active Substance: APREPITANT
     Dates: start: 20200218, end: 20200218
  58. ASPIRIN. [Concomitant]
     Active Substance: ASPIRIN
     Route: 048
     Dates: start: 20200417, end: 20200417
  59. DECADRON [Concomitant]
     Active Substance: DEXAMETHASONE
     Dates: start: 20200203, end: 20200203
  60. MORPHINE [Concomitant]
     Active Substance: MORPHINE
     Route: 042
     Dates: start: 20200418, end: 20200419
  61. MORPHINE [Concomitant]
     Active Substance: MORPHINE
     Route: 042
     Dates: start: 20200418, end: 20200418
  62. ROBINUL [Concomitant]
     Active Substance: GLYCOPYRROLATE
     Dates: start: 20200420, end: 20200420
  63. HALDOL [Concomitant]
     Active Substance: HALOPERIDOL
     Dates: start: 20200420, end: 20200420
  64. SYNTHROID [Concomitant]
     Active Substance: LEVOTHYROXINE SODIUM
     Dosage: 75 MCG
     Route: 048
     Dates: start: 20200418, end: 20200419
  65. ATIVAN [Concomitant]
     Active Substance: LORAZEPAM
     Dates: start: 20200419, end: 20200419
  66. REGLAN [Concomitant]
     Active Substance: METOCLOPRAMIDE HYDROCHLORIDE
     Route: 042
     Dates: start: 20200418, end: 20200418

REACTIONS (22)
  - Insomnia [Recovered/Resolved]
  - Erythema [Recovered/Resolved]
  - Back pain [Recovered/Resolved]
  - Gait disturbance [Recovered/Resolved]
  - Alanine aminotransferase increased [Recovered/Resolved]
  - Pneumonia [Fatal]
  - Abdominal pain [Recovered/Resolved]
  - Pollakiuria [Recovered/Resolved]
  - COVID-19 [Unknown]
  - Hyponatraemia [Recovered/Resolved]
  - Weight decreased [Recovered/Resolved]
  - Nausea [Recovered/Resolved]
  - Constipation [Recovered/Resolved]
  - Urinary tract infection [Recovered/Resolved]
  - Anxiety [Recovered/Resolved]
  - Fatigue [Not Recovered/Not Resolved]
  - Dry skin [Recovered/Resolved]
  - Paraesthesia [Recovered/Resolved]
  - Blood alkaline phosphatase increased [Recovered/Resolved]
  - Decreased appetite [Recovered/Resolved]
  - Aspartate aminotransferase increased [Recovered/Resolved]
  - Insomnia [Recovered/Resolved]

NARRATIVE: CASE EVENT DATE: 20191216
